FAERS Safety Report 15577912 (Version 3)
Quarter: 2018Q4

REPORT INFORMATION
  Report Type: Spontaneous
  Country: US (occurrence: US)
  Receive Date: 20181102
  Receipt Date: 20181112
  Transmission Date: 20190205
  Serious: No
  Sender: FDA-Public Use
  Company Number: US-PFIZER INC-2018441996

PATIENT
  Age: 58 Year
  Sex: Female
  Weight: 57 kg

DRUGS (1)
  1. PREMARIN [Suspect]
     Active Substance: ESTROGENS, CONJUGATED
     Indication: VULVOVAGINAL DRYNESS
     Dosage: ONCE DAILY (STRENGTH: 0.625 MG)
     Route: 061
     Dates: start: 20181003

REACTIONS (7)
  - Nausea [Unknown]
  - Product use issue [Unknown]
  - Weight fluctuation [Unknown]
  - Abdominal pain upper [Unknown]
  - Abdominal distension [Unknown]
  - Abdominal pain [Unknown]
  - Pruritus [Unknown]

NARRATIVE: CASE EVENT DATE: 20181003
